FAERS Safety Report 13934926 (Version 1)
Quarter: 2017Q3

REPORT INFORMATION
  Report Type: Spontaneous
  Country: US (occurrence: None)
  Receive Date: 20170901
  Receipt Date: 20170901
  Transmission Date: 20171127
  Serious: Yes (Hospitalization)
  Sender: FDA-Public Use
  Company Number: None

PATIENT
  Age: 76 Year
  Sex: Male
  Weight: 134 kg

DRUGS (2)
  1. NIVOLUMAB [Suspect]
     Active Substance: NIVOLUMAB
     Dates: start: 20170428, end: 20170811
  2. ROSUVASTATIN. [Suspect]
     Active Substance: ROSUVASTATIN
     Indication: HYPERLIPIDAEMIA
     Route: 048
     Dates: start: 20160419, end: 20170820

REACTIONS (13)
  - Dyspnoea [None]
  - Productive cough [None]
  - Blood creatine phosphokinase increased [None]
  - Ulcer [None]
  - Body temperature increased [None]
  - Fall [None]
  - Musculoskeletal pain [None]
  - Wound secretion [None]
  - Heart rate increased [None]
  - Oedema [None]
  - White blood cell count increased [None]
  - Condition aggravated [None]
  - Cellulitis [None]

NARRATIVE: CASE EVENT DATE: 20170820
